FAERS Safety Report 10295113 (Version 2)
Quarter: 2014Q3

REPORT INFORMATION
  Report Type: Spontaneous
  Country: US (occurrence: US)
  Receive Date: 20140710
  Receipt Date: 20140710
  Transmission Date: 20150326
  Serious: No
  Sender: FDA-Public Use
  Company Number: US-PURDUE-USA-2014-0113537

PATIENT
  Age: 52 Year
  Sex: Female
  Weight: 107.48 kg

DRUGS (5)
  1. VIVELLE DOT [Concomitant]
     Active Substance: ESTRADIOL
     Indication: POSTMENOPAUSE
     Dosage: 0.1 MG/HR, BIW
     Route: 062
     Dates: start: 201302, end: 20140529
  2. CYCLOBENZAPRINE [Concomitant]
     Active Substance: CYCLOBENZAPRINE
     Indication: MUSCLE SPASMS
     Dosage: 10 MG, Q8H
     Route: 048
  3. CYCLOBENZAPRINE [Concomitant]
     Active Substance: CYCLOBENZAPRINE
     Indication: PAIN
  4. VIIBBRYD [Concomitant]
     Indication: DEPRESSION
     Dosage: 40 MG, DAILY
     Route: 048
     Dates: start: 20131220
  5. BUTRANS [Suspect]
     Active Substance: BUPRENORPHINE
     Indication: PAIN
     Dosage: 10 MCG/HR, WEEKLY
     Route: 062
     Dates: start: 20140312, end: 20140319

REACTIONS (3)
  - Tachycardia [Recovered/Resolved]
  - Skin irritation [Unknown]
  - Dyspnoea [Recovered/Resolved]

NARRATIVE: CASE EVENT DATE: 20140313
